FAERS Safety Report 25827084 (Version 1)
Quarter: 2025Q3

REPORT INFORMATION
  Report Type: Spontaneous
  Country: CN (occurrence: CN)
  Receive Date: 20250920
  Receipt Date: 20250920
  Transmission Date: 20251021
  Serious: Yes (Other)
  Sender: NOVARTIS
  Company Number: CN-002147023-NVSC2025CN140819

PATIENT
  Age: 67 Year
  Sex: Female
  Weight: 48 kg

DRUGS (3)
  1. CARBAMAZEPINE [Suspect]
     Active Substance: CARBAMAZEPINE
     Indication: Post herpetic neuralgia
     Dosage: 0.100 G, BID
     Route: 048
     Dates: start: 20250827, end: 20250902
  2. NIFEDIPINE [Concomitant]
     Active Substance: NIFEDIPINE
     Indication: Hypertension
     Dosage: 30 MG, QD (CONTROLLED RELEASE TABLETS)
     Route: 048
     Dates: start: 20250813, end: 20250902
  3. ACYCLOVIR [Concomitant]
     Active Substance: ACYCLOVIR
     Indication: Post herpetic neuralgia
     Route: 048
     Dates: start: 20250813, end: 20250902

REACTIONS (5)
  - Confusional state [Recovering/Resolving]
  - Restlessness [Recovering/Resolving]
  - Visual agnosia [Recovering/Resolving]
  - Unresponsive to stimuli [Recovering/Resolving]
  - Sluggishness [Recovering/Resolving]

NARRATIVE: CASE EVENT DATE: 20250901
